FAERS Safety Report 5052433-0 (Version None)
Quarter: 2006Q2

REPORT INFORMATION
  Report Type: 
  Country: None (occurrence: None)
  Receive Date: 20060614
  Receipt Date: 20060302
  Transmission Date: 20061013
  Serious: Yes (Other)
  Sender: FDA-Public Use
  Company Number: 439080

PATIENT
  Sex: Female

DRUGS (5)
  1. BONIVA [Suspect]
     Indication: OSTEOPENIA
     Dosage: 150 MG, 1 PER MONTH, ORAL
     Route: 048
     Dates: start: 20060226
  2. CALTRATE + VITAMIN D (CALCIUM CARBONATE/ VITAMIN D NOS) [Concomitant]
  3. CHONDROITIN/ GLUCOSAMINE (CHONDROITIN SULFATE/ GLUCOSAMINE) [Concomitant]
  4. SYNTHROID [Concomitant]
  5. NEXIUM [Concomitant]

REACTIONS (2)
  - BACK PAIN [None]
  - RHINORRHOEA [None]
